FAERS Safety Report 8066540-1 (Version None)
Quarter: 2012Q1

REPORT INFORMATION
  Report Type: 
  Country: None (occurrence: None)
  Receive Date: 20120124
  Receipt Date: 20120116
  Transmission Date: 20120608
  Serious: Yes (Other)
  Sender: FDA-Public Use
  Company Number: PHHY2012US005783

PATIENT

DRUGS (3)
  1. CARBAMAZEPINE [Suspect]
  2. LISINOPRIL [Suspect]
  3. BACTRIM [Suspect]

REACTIONS (1)
  - LIVER DISORDER [None]
